FAERS Safety Report 5811652-3 (Version None)
Quarter: 2008Q3

REPORT INFORMATION
  Report Type: 
  Country: None (occurrence: None)
  Receive Date: 20080716
  Receipt Date: 20080710
  Transmission Date: 20090109
  Serious: Yes (Other)
  Sender: FDA-Public Use
  Company Number: JP-ASTRAZENECA-2008AP05180

PATIENT
  Age: 80 Year
  Sex: Female

DRUGS (5)
  1. PULMICORT [Suspect]
     Indication: ASTHMA
     Route: 055
     Dates: start: 20020101
  2. ALFAROL [Concomitant]
     Indication: OSTEOPOROSIS
     Dosage: DOSE UNKNOWN
     Route: 048
     Dates: start: 20040401
  3. ALFAROL [Concomitant]
     Route: 048
     Dates: start: 20080401
  4. ONON [Concomitant]
     Indication: ASTHMA
     Route: 048
     Dates: start: 20040401
  5. TULOBUTEROL [Concomitant]
     Indication: ASTHMA
     Dosage: NUMBER OF SEPARATE DOSAGES UNKNOWN
     Route: 062
     Dates: start: 20060401

REACTIONS (2)
  - BONE DENSITY DECREASED [None]
  - COMPRESSION FRACTURE [None]
